FAERS Safety Report 4299751-1 (Version None)
Quarter: 2004Q1

REPORT INFORMATION
  Report Type: 
  Country: None (occurrence: None)
  Receive Date: 20040126
  Receipt Date: 20031210
  Transmission Date: 20041129
  Serious: Yes (Other)
  Sender: FDA-Public Use
  Company Number: USA031152774

PATIENT
  Age: 69 Year
  Sex: Female
  Weight: 65 kg

DRUGS (3)
  1. STRATTERA [Suspect]
     Indication: ATTENTION DEFICIT/HYPERACTIVITY DISORDER
     Dosage: 40 MG/2 TIMES DAY
     Dates: start: 20030804, end: 20031110
  2. PROTONIX [Concomitant]
  3. PREMARIN [Concomitant]

REACTIONS (3)
  - ATRIAL FIBRILLATION [None]
  - TACHYCARDIA [None]
  - THYROID DISORDER [None]
